FAERS Safety Report 6310734-X (Version None)
Quarter: 2009Q3

REPORT INFORMATION
  Report Type: 
  Country: None (occurrence: None)
  Receive Date: 20090811
  Receipt Date: 20090616
  Transmission Date: 20100115
  Serious: No
  Sender: FDA-Public Use
  Company Number: 1000006852

PATIENT
  Age: 65 Year
  Sex: Female

DRUGS (1)
  1. SAVELLA [Suspect]
     Dosage: ORAL
     Route: 048

REACTIONS (2)
  - AGITATION [None]
  - ANGER [None]
